FAERS Safety Report 4420906-7 (Version None)
Quarter: 2004Q3

REPORT INFORMATION
  Report Type: 
  Country: None (occurrence: None)
  Receive Date: 20040809
  Receipt Date: 20040726
  Transmission Date: 20050211
  Serious: Yes (Death, Hospitalization)
  Sender: FDA-Public Use
  Company Number: US-MERCK-0407USA02349

PATIENT
  Age: 86 Year
  Sex: Female

DRUGS (5)
  1. FOSAMAX [Suspect]
     Route: 048
     Dates: end: 20040701
  2. ATENOLOL [Suspect]
     Route: 065
     Dates: end: 20040701
  3. LASIX [Suspect]
     Route: 065
     Dates: end: 20040701
  4. LISINOPRIL [Suspect]
     Route: 065
     Dates: end: 20040501
  5. MEVACOR [Suspect]
     Route: 048
     Dates: start: 19960101, end: 20040726

REACTIONS (12)
  - ANTINUCLEAR ANTIBODY POSITIVE [None]
  - C-REACTIVE PROTEIN INCREASED [None]
  - CHILLS [None]
  - COUGH [None]
  - EOSINOPHIL COUNT INCREASED [None]
  - EOSINOPHILIC MYOCARDITIS [None]
  - GASTROENTERITIS [None]
  - HYPERHIDROSIS [None]
  - MALAISE [None]
  - PYREXIA [None]
  - RED BLOOD CELL SEDIMENTATION RATE INCREASED [None]
  - WHITE BLOOD CELL COUNT INCREASED [None]
